FAERS Safety Report 5192778-7 (Version None)
Quarter: 2006Q4

REPORT INFORMATION
  Report Type: 
  Country: None (occurrence: None)
  Receive Date: 20061221
  Receipt Date: 20061211
  Transmission Date: 20070319
  Serious: Yes (Hospitalization, Disabling, Other)
  Sender: FDA-Public Use
  Company Number: 2006PV026396

PATIENT
  Age: 70 Year
  Sex: Male

DRUGS (1)
  1. BYETTA [Suspect]
     Indication: DIABETES MELLITUS NON-INSULIN-DEPENDENT
     Dosage: SC
     Route: 058
     Dates: start: 20061101

REACTIONS (7)
  - BLINDNESS UNILATERAL [None]
  - CONDITION AGGRAVATED [None]
  - EPISTAXIS [None]
  - EYE DISORDER [None]
  - MYOCARDIAL INFARCTION [None]
  - THROMBOSIS [None]
  - VITREOUS FLOATERS [None]
